FAERS Safety Report 9483512 (Version 1)
Quarter: 2013Q3

REPORT INFORMATION
  Report Type: Spontaneous
  Country: CA (occurrence: CA)
  Receive Date: 20130828
  Receipt Date: 20130828
  Transmission Date: 20140515
  Serious: Yes (Other)
  Sender: FDA-Public Use
  Company Number: CA-AMGEN-KDL274207

PATIENT
  Age: 64 Year
  Sex: Female
  Weight: 61.3 kg

DRUGS (7)
  1. ENBREL [Suspect]
     Indication: RHEUMATOID ARTHRITIS
     Dosage: 25 MG, 2 TIMES/WK
     Route: 058
     Dates: start: 20060516
  2. DILTIAZEM HYDROCHLORIDE [Concomitant]
     Dosage: UNK UNK, UNK
  3. METHOTREXATE [Concomitant]
     Dosage: 12.5 MG, UNK
  4. ATORVASTATIN CALCIUM [Concomitant]
     Dosage: 20 MG, UNK
  5. TEVETEN [Concomitant]
     Dosage: 600 MG, UNK
  6. FOLIC ACID [Concomitant]
     Dosage: 5 MG, UNK
  7. LEVOTHRYROXINE SODIUM [Concomitant]
     Dosage: UNK UNK, UNK

REACTIONS (1)
  - Hepatic neoplasm [Unknown]
